FAERS Safety Report 8943350 (Version 3)
Quarter: 2013Q1

REPORT INFORMATION
  Report Type: Spontaneous
  Country: US (occurrence: US)
  Receive Date: 20121204
  Receipt Date: 20130313
  Transmission Date: 20140127
  Serious: No
  Sender: FDA-Public Use
  Company Number: US-009507513-1212USA000657

PATIENT
  Sex: Female
  Weight: 65.99 kg

DRUGS (2)
  1. DULERA [Suspect]
     Indication: ASTHMA
     Dosage: 2 DF, BID
     Route: 055
     Dates: start: 20120522
  2. XOPENEX [Concomitant]
     Indication: ASTHMA
     Dosage: INHALER, PRN
     Route: 055
     Dates: start: 20120328

REACTIONS (3)
  - Incorrect dose administered [Unknown]
  - Drug dose omission [Unknown]
  - Product quality issue [Unknown]
